FAERS Safety Report 4432557-9 (Version None)
Quarter: 2004Q3

REPORT INFORMATION
  Report Type: 
  Country: None (occurrence: None)
  Receive Date: 20040820
  Receipt Date: 20040804
  Transmission Date: 20050211
  Serious: Yes (Hospitalization, Other)
  Sender: FDA-Public Use
  Company Number: A-US2004-07003

PATIENT
  Age: 41 Year
  Sex: Male

DRUGS (8)
  1. TRACLEER [Suspect]
     Indication: PULMONARY HYPERTENSION
     Dosage: SEE  IMAGE
     Route: 048
     Dates: start: 20030401, end: 20030501
  2. TRACLEER [Suspect]
     Indication: PULMONARY HYPERTENSION
     Dosage: SEE  IMAGE
     Route: 048
     Dates: start: 20030501, end: 20040716
  3. LOVASTATIN [Suspect]
     Dosage: 20 MG, QD
     Dates: end: 20040714
  4. WELLBUTRIN [Suspect]
     Dates: end: 20040714
  5. COUMADIN [Concomitant]
  6. PRINIVIL [Concomitant]
  7. ASPIRINE (ACETYLSALICYLIC ACID0 [Concomitant]
  8. MILK OF MAGNESIA (MAGNESIUM HYDROXIDE) [Concomitant]

REACTIONS (4)
  - ANTIBODY TEST POSITIVE [None]
  - HEPATITIS [None]
  - INTERNATIONAL NORMALISED RATIO INCREASED [None]
  - NEPHROLITHIASIS [None]
